FAERS Safety Report 24698128 (Version 1)
Quarter: 2024Q4

REPORT INFORMATION
  Report Type: Spontaneous
  Country: US (occurrence: US)
  Receive Date: 20241204
  Receipt Date: 20241204
  Transmission Date: 20250115
  Serious: No
  Sender: SANOFI AVENTIS
  Company Number: US-SA-2024SA356721

PATIENT
  Age: 47 Year
  Sex: Female

DRUGS (1)
  1. DUPIXENT [Suspect]
     Active Substance: DUPILUMAB
     Indication: Asthma
     Dosage: 300 MG
     Route: 058
     Dates: start: 202410

REACTIONS (4)
  - Heart rate increased [Recovered/Resolved]
  - Myalgia [Not Recovered/Not Resolved]
  - Eczema [Not Recovered/Not Resolved]
  - Arthralgia [Not Recovered/Not Resolved]
